FAERS Safety Report 17953185 (Version 1)
Quarter: 2020Q2

REPORT INFORMATION
  Report Type: Spontaneous
  Country: CA (occurrence: CA)
  Receive Date: 20200628
  Receipt Date: 20200628
  Transmission Date: 20200714
  Serious: Yes (Other)
  Sender: FDA-Public Use
  Company Number: NVSC2020CA179997

PATIENT
  Age: 24 Year
  Sex: Male

DRUGS (7)
  1. KETOROLAC TROMETHAMINE INJECTION USP [Suspect]
     Active Substance: KETOROLAC TROMETHAMINE
     Indication: PRODUCT USED FOR UNKNOWN INDICATION
     Dosage: 30 MG/ML, ONCE/SINGLE
     Route: 065
  2. PROPOFOL. [Suspect]
     Active Substance: PROPOFOL
     Indication: PRODUCT USED FOR UNKNOWN INDICATION
     Dosage: 550 MG (200 MG/ 20 ML, 500 MG/ 50 ML AND 1000 MG/ 100 ML)
     Route: 065
  3. ONDANSETRON HYDROCHLORIDE DIHYDRATE INJECTION [Suspect]
     Active Substance: ONDANSETRON HYDROCHLORIDE
     Indication: PRODUCT USED FOR UNKNOWN INDICATION
     Dosage: 4 MG
     Route: 065
  4. FENTANYL CITRATE INJECTION SDZ [Suspect]
     Active Substance: FENTANYL CITRATE
     Indication: PRODUCT USED FOR UNKNOWN INDICATION
     Dosage: 100 UG
     Route: 065
  5. DEXAMETHASONE SODIUM PHOSPHATE INJ USP 4 MG/ML [Suspect]
     Active Substance: DEXAMETHASONE SODIUM PHOSPHATE
     Indication: PRODUCT USED FOR UNKNOWN INDICATION
     Dosage: 8 MG (DOSAGE FORM: LIQUID INTRAARTICULAR)
     Route: 065
  6. MIDAZOLAM INJECTION [Suspect]
     Active Substance: MIDAZOLAM HYDROCHLORIDE
     Indication: PRODUCT USED FOR UNKNOWN INDICATION
     Dosage: 1 MG, ONCE/SINGLE (DOSAGE FORM: LIQUID INTRAARTICULAR)
     Route: 065
  7. MIDAZOLAM INJECTION [Suspect]
     Active Substance: MIDAZOLAM HYDROCHLORIDE
     Dosage: 2 MG/ML (DOSAGE FORM: LIQUID INTRAARTICULAR)
     Route: 065

REACTIONS (3)
  - Urticaria [Recovered/Resolved]
  - Periorbital swelling [Recovered/Resolved]
  - Lip swelling [Recovered/Resolved]
